FAERS Safety Report 21970652 (Version 3)
Quarter: 2023Q4

REPORT INFORMATION
  Report Type: Report from Study
  Country: UY (occurrence: UY)
  Receive Date: 20230209
  Receipt Date: 20231215
  Transmission Date: 20240110
  Serious: Yes (Other)
  Sender: FDA-Public Use
  Company Number: UY-ABBVIE-22K-168-4506954-00

PATIENT
  Sex: Female

DRUGS (2)
  1. HUMIRA [Suspect]
     Active Substance: ADALIMUMAB
     Indication: Rheumatoid arthritis
     Dosage: FORM STRENGTH: 40 MILLIGRAM
     Route: 058
     Dates: end: 20230211
  2. HUMIRA [Suspect]
     Active Substance: ADALIMUMAB
     Dosage: FORM STRENGTH: 40 MILLIGRAM
     Route: 058
     Dates: start: 20170810

REACTIONS (5)
  - Osteoarthritis [Recovering/Resolving]
  - Postoperative wound infection [Unknown]
  - COVID-19 [Unknown]
  - Rheumatoid arthritis [Recovering/Resolving]
  - Hip arthroplasty [Unknown]

NARRATIVE: CASE EVENT DATE: 20200101
